FAERS Safety Report 9175019 (Version 2)
Quarter: 2013Q1

REPORT INFORMATION
  Report Type: Spontaneous
  Country: GB (occurrence: None)
  Receive Date: 20130325
  Receipt Date: 20130325
  Transmission Date: 20140127
  Serious: Yes (Other)
  Sender: FDA-Public Use
  Company Number: AUR-APL-2013-02219

PATIENT
  Age: 64 Year
  Sex: Male
  Weight: 82 kg

DRUGS (4)
  1. RAMIPRIL [Suspect]
     Indication: CORONARY ARTERY DISEASE
     Route: 048
     Dates: start: 1999, end: 201301
  2. ASPIRIN (ACETYLSALICYLIC ACID) [Concomitant]
  3. ATORVASTATIN (ATORVASTATIN) [Concomitant]
  4. ISOTARD XL (ISOSORBIDE MONONITRATE) [Concomitant]

REACTIONS (3)
  - Rash erythematous [None]
  - Scratch [None]
  - Pruritus [None]
